FAERS Safety Report 4436163-1 (Version None)
Quarter: 2004Q3

REPORT INFORMATION
  Report Type: 
  Country: None (occurrence: None)
  Receive Date: 20040830
  Receipt Date: 20040419
  Transmission Date: 20050211
  Serious: No
  Sender: FDA-Public Use
  Company Number: US-BRISTOL-MYERS SQUIBB COMPANY-12564159

PATIENT
  Age: 56 Year
  Sex: Male
  Weight: 104 kg

DRUGS (6)
  1. ERBITUX [Suspect]
     Indication: COLON CANCER METASTATIC
     Route: 042
     Dates: start: 20040415, end: 20040415
  2. CAMPTOSAR [Concomitant]
  3. ANZEMET [Concomitant]
     Indication: PREMEDICATION
     Dates: start: 20040415, end: 20040415
  4. DECADRON [Concomitant]
     Indication: PREMEDICATION
     Dates: start: 20040415, end: 20040415
  5. ATROPINE [Concomitant]
     Indication: PREMEDICATION
     Dates: start: 20040415, end: 20040415
  6. BENADRYL [Concomitant]
     Indication: PREMEDICATION
     Dates: start: 20040415, end: 20040415

REACTIONS (2)
  - BLISTER [None]
  - SWELLING [None]
